FAERS Safety Report 23400635 (Version 1)
Quarter: 2024Q1

REPORT INFORMATION
  Report Type: Report from Study
  Country: CO (occurrence: CO)
  Receive Date: 20240115
  Receipt Date: 20240115
  Transmission Date: 20240410
  Serious: Yes (Death, Other)
  Sender: FDA-Public Use
  Company Number: CO-UCBSA-2024002017

PATIENT
  Age: 75 Year
  Sex: Female

DRUGS (1)
  1. ROTIGOTINE [Suspect]
     Active Substance: ROTIGOTINE
     Indication: Parkinson^s disease
     Dosage: 8 MILLIGRAM, ONCE DAILY (QD)
     Route: 062
     Dates: start: 20221021, end: 20231231

REACTIONS (3)
  - Death [Fatal]
  - Hip fracture [Unknown]
  - Off label use [Unknown]

NARRATIVE: CASE EVENT DATE: 20221021
